FAERS Safety Report 9628743 (Version 5)
Quarter: 2015Q2

REPORT INFORMATION
  Report Type: Spontaneous
  Country: JP (occurrence: JP)
  Receive Date: 20131017
  Receipt Date: 20150621
  Transmission Date: 20150821
  Serious: Yes (Hospitalization)
  Sender: FDA-Public Use
  Company Number: JP-AMGEN-JPNSP2013073281

PATIENT
  Age: 69 Year
  Sex: Male
  Weight: 67.5 kg

DRUGS (12)
  1. RANMARK [Suspect]
     Active Substance: DENOSUMAB
     Indication: LUNG NEOPLASM MALIGNANT
  2. OLMETEC [Concomitant]
     Active Substance: OLMESARTAN MEDOXOMIL
     Indication: HYPERTENSION
     Dosage: 40 MG, QD
     Route: 048
     Dates: start: 201206
  3. GLIMEPIRIDE. [Concomitant]
     Active Substance: GLIMEPIRIDE
     Indication: DIABETES MELLITUS
     Dosage: 1 MG, QD
     Route: 048
     Dates: start: 201206
  4. AVASTIN [Concomitant]
     Active Substance: BEVACIZUMAB
     Indication: LUNG ADENOCARCINOMA
     Dosage: 1000 MG, QD
     Route: 041
     Dates: start: 20120723, end: 20130514
  5. ASPARA-CA [Concomitant]
     Active Substance: CALCIUM ASPARTATE
     Indication: BONE NEOPLASM
     Dosage: UNK
     Route: 065
     Dates: start: 20120903, end: 20130514
  6. PANVITAN                           /05664201/ [Concomitant]
     Active Substance: VITAMINS
     Indication: LUNG ADENOCARCINOMA
     Dosage: UNK
     Route: 065
     Dates: start: 20120723, end: 201307
  7. RANMARK [Suspect]
     Active Substance: DENOSUMAB
     Indication: BONE NEOPLASM
     Dosage: 120 MG, UNK
     Route: 058
     Dates: start: 20120903, end: 20130514
  8. ALIMTA [Concomitant]
     Active Substance: PEMETREXED DISODIUM
     Indication: LUNG ADENOCARCINOMA
     Dosage: 720 MG, QD
     Route: 041
     Dates: start: 20120723, end: 20130610
  9. CALFINA [Concomitant]
     Active Substance: ALFACALCIDOL
     Indication: BONE NEOPLASM
     Dosage: UNK
     Route: 065
     Dates: start: 20120903, end: 20130514
  10. FAMOGAST [Concomitant]
     Indication: CHRONIC GASTRITIS
     Dosage: UNK
     Route: 065
     Dates: start: 201206
  11. PANVITAN                           /05664201/ [Concomitant]
     Active Substance: VITAMINS
     Indication: LUNG ADENOCARCINOMA
     Dosage: UNK
     Route: 065
     Dates: start: 20120723, end: 201307
  12. ADALAT CRONO [Concomitant]
     Active Substance: NIFEDIPINE
     Indication: HYPERTENSION
     Dosage: 20 MG, BID
     Route: 048
     Dates: start: 201206

REACTIONS (1)
  - Osteonecrosis of jaw [Not Recovered/Not Resolved]

NARRATIVE: CASE EVENT DATE: 201302
